FAERS Safety Report 10348106 (Version 1)
Quarter: 2014Q3

REPORT INFORMATION
  Report Type: Spontaneous
  Country: GB (occurrence: GB)
  Receive Date: 20140729
  Receipt Date: 20140729
  Transmission Date: 20150326
  Serious: Yes (Other)
  Sender: FDA-Public Use
  Company Number: PHHY2014GB089735

PATIENT
  Age: 11 Year
  Sex: Male
  Weight: 54.8 kg

DRUGS (11)
  1. AMOXICILLIN. [Suspect]
     Active Substance: AMOXICILLIN
     Indication: APPENDICECTOMY
     Dosage: 500 MG, UNK
     Route: 042
     Dates: start: 20140619, end: 20140623
  2. CEFUROXIME. [Concomitant]
     Active Substance: CEFUROXIME
  3. DICLOFENAC [Concomitant]
     Active Substance: DICLOFENAC
  4. METRONIDAZOLE. [Concomitant]
     Active Substance: METRONIDAZOLE
  5. ONDANSETRON [Concomitant]
     Active Substance: ONDANSETRON
  6. IBUPROFEN. [Concomitant]
     Active Substance: IBUPROFEN
  7. SALBUTAMOL [Concomitant]
     Active Substance: ALBUTEROL
  8. MORPHINE [Concomitant]
     Active Substance: MORPHINE
  9. BECLOMETASONE [Concomitant]
     Active Substance: BECLOMETHASONE DIPROPIONATE
  10. GENTAMICIN [Concomitant]
     Active Substance: GENTAMICIN
  11. PARACETAMOL [Concomitant]
     Active Substance: ACETAMINOPHEN

REACTIONS (4)
  - Pallor [Recovered/Resolved]
  - Infusion site vesicles [Recovered/Resolved with Sequelae]
  - Catheter site swelling [Recovered/Resolved]
  - Catheter site related reaction [Recovered/Resolved]

NARRATIVE: CASE EVENT DATE: 20140621
